FAERS Safety Report 15918011 (Version 1)
Quarter: 2019Q1

REPORT INFORMATION
  Report Type: Spontaneous
  Country: PL (occurrence: PL)
  Receive Date: 20190205
  Receipt Date: 20190205
  Transmission Date: 20190417
  Serious: Yes (Death, Hospitalization, Other)
  Sender: FDA-Public Use
  Company Number: PL-TEVA-2019-PL-1007351

PATIENT
  Age: 31 Year
  Sex: Male

DRUGS (15)
  1. MESALAZINE [Concomitant]
     Active Substance: MESALAMINE
     Indication: COLITIS ULCERATIVE
     Route: 065
  2. COLISTIN [Concomitant]
     Active Substance: COLISTIN
     Indication: PNEUMOCYSTIS JIROVECII INFECTION
     Dosage: 3 MLN UNITS THREE TIMES A DAY
     Route: 042
  3. TACROLIMUS. [Suspect]
     Active Substance: TACROLIMUS
     Indication: IMMUNOSUPPRESSANT DRUG THERAPY
     Route: 065
  4. PREDNISONE. [Suspect]
     Active Substance: PREDNISONE
     Indication: IMMUNOSUPPRESSANT DRUG THERAPY
     Route: 065
  5. ANTITHYMOCYTE GLOBULIN [Suspect]
     Active Substance: THYMOCYTE IMMUNE GLOBULIN NOS
     Indication: IMMUNOSUPPRESSANT DRUG THERAPY
     Dosage: IN 10 DAYS
     Route: 065
  6. COLISTIN [Concomitant]
     Active Substance: COLISTIN
     Indication: PNEUMOCYSTIS JIROVECII INFECTION
     Route: 055
  7. MEROPENEM. [Concomitant]
     Active Substance: MEROPENEM
     Indication: SUPERINFECTION BACTERIAL
     Route: 065
  8. MYCOPHENOLATE MOFETIL. [Suspect]
     Active Substance: MYCOPHENOLATE MOFETIL
     Indication: IMMUNOSUPPRESSANT DRUG THERAPY
     Route: 065
  9. METHYLPREDNISOLONE. [Suspect]
     Active Substance: METHYLPREDNISOLONE
     Indication: IMMUNOSUPPRESSANT DRUG THERAPY
     Dosage: DOSE REDUCED TO 40 MG/DAY
     Route: 050
  10. PREDNISONE. [Suspect]
     Active Substance: PREDNISONE
     Indication: IMMUNOSUPPRESSANT DRUG THERAPY
     Route: 065
  11. VELCADE [Suspect]
     Active Substance: BORTEZOMIB
     Indication: TRANSPLANT REJECTION
     Dosage: 4 X 2 MG, (1.25 MG/M2 OF BODY SURFACE)
     Route: 050
  12. VALGANCICLOVIR. [Concomitant]
     Active Substance: VALGANCICLOVIR
     Indication: ANTIVIRAL PROPHYLAXIS
     Route: 065
  13. TRIMETHOPRIM/SULFAMETHOXAZOLE [Suspect]
     Active Substance: SULFAMETHOXAZOLE\TRIMETHOPRIM
     Indication: PNEUMOCYSTIS JIROVECII INFECTION
     Dosage: THREE TIMES A DAY
     Route: 065
  14. GANCICLOVIR. [Concomitant]
     Active Substance: GANCICLOVIR
     Indication: ANTIVIRAL PROPHYLAXIS
     Route: 065
  15. LINEZOLID. [Concomitant]
     Active Substance: LINEZOLID
     Indication: PNEUMOCYSTIS JIROVECII INFECTION
     Route: 065

REACTIONS (10)
  - Pancytopenia [Not Recovered/Not Resolved]
  - Cytomegalovirus infection [Fatal]
  - Drug ineffective [Unknown]
  - Thrombocytopenia [Recovering/Resolving]
  - Influenza like illness [Recovering/Resolving]
  - Pulmonary fibrosis [Fatal]
  - Leukocytosis [Recovering/Resolving]
  - Respiratory distress [Fatal]
  - Hypogammaglobulinaemia [Recovering/Resolving]
  - Neutropenia [Recovering/Resolving]
